FAERS Safety Report 19665848 (Version 1)
Quarter: 2021Q3

REPORT INFORMATION
  Report Type: Spontaneous
  Country: US (occurrence: US)
  Receive Date: 20210805
  Receipt Date: 20210805
  Transmission Date: 20211014
  Serious: Yes (Disabling)
  Sender: FDA-Public Use
  Company Number: None

PATIENT

DRUGS (1)
  1. BASAGLAR [Suspect]
     Active Substance: INSULIN GLARGINE

REACTIONS (7)
  - Staring [None]
  - Crying [None]
  - Musculoskeletal stiffness [None]
  - Aphasia [None]
  - Blood pressure increased [None]
  - Loss of consciousness [None]
  - Seizure [None]
